FAERS Safety Report 22017000 (Version 2)
Quarter: 2023Q1

REPORT INFORMATION
  Report Type: Spontaneous
  Country: GB (occurrence: None)
  Receive Date: 20230221
  Receipt Date: 20230306
  Transmission Date: 20230417
  Serious: Yes (Death, Hospitalization, Other)
  Sender: FDA-Public Use
  Company Number: 2022A114403

PATIENT
  Age: 56 Year
  Sex: Female
  Weight: 54 kg

DRUGS (3)
  1. TICAGRELOR [Suspect]
     Active Substance: TICAGRELOR
     Indication: Myocardial infarction
     Dosage: UNKNOWN
     Dates: start: 20210723
  2. FONDAPARINUX [Suspect]
     Active Substance: FONDAPARINUX
     Indication: Myocardial infarction
     Dosage: UNK UNKNOWN
     Dates: start: 20210723
  3. ASPIRIN [Concomitant]
     Active Substance: ASPIRIN
     Indication: Embolism arterial
     Dosage: UNKNOWN
     Dates: start: 20200712

REACTIONS (7)
  - Chest pain [Fatal]
  - Pancreatitis haemorrhagic [Fatal]
  - Hypovolaemia [Fatal]
  - Multiple organ dysfunction syndrome [Fatal]
  - Retroperitoneal haemorrhage [Fatal]
  - Medication error [Fatal]
  - Product monitoring error [Fatal]

NARRATIVE: CASE EVENT DATE: 20210727
